FAERS Safety Report 12632817 (Version 2)
Quarter: 2016Q3

REPORT INFORMATION
  Report Type: Spontaneous
  Country: US (occurrence: US)
  Receive Date: 20160808
  Receipt Date: 20160808
  Transmission Date: 20161109
  Serious: No
  Sender: FDA-Public Use
  Company Number: US-BEH-2015057079

PATIENT
  Sex: Female
  Weight: 96 kg

DRUGS (16)
  1. NADOLOL. [Concomitant]
     Active Substance: NADOLOL
  2. VALTREX [Concomitant]
     Active Substance: VALACYCLOVIR HYDROCHLORIDE
  3. DIPHENHYDRAMINE. [Concomitant]
     Active Substance: DIPHENHYDRAMINE
  4. LIDOCAINE/PRILOCAINE [Concomitant]
     Active Substance: LIDOCAINE\PRILOCAINE
  5. MULTIVITAMINS [Concomitant]
     Active Substance: VITAMINS
  6. HIZENTRA [Suspect]
     Active Substance: HUMAN IMMUNOGLOBULIN G
     Indication: IMMUNODEFICIENCY COMMON VARIABLE
     Route: 058
  7. ACETAMINOPHEN. [Concomitant]
     Active Substance: ACETAMINOPHEN
  8. EPIPEN [Concomitant]
     Active Substance: EPINEPHRINE
  9. PANTOPRAZOLE [Concomitant]
     Active Substance: PANTOPRAZOLE SODIUM
  10. TRAMADOL. [Concomitant]
     Active Substance: TRAMADOL
  11. CYMBALTA [Concomitant]
     Active Substance: DULOXETINE HYDROCHLORIDE
  12. MILK THISTLE [Concomitant]
     Active Substance: MILK THISTLE
  13. LIDOCAINE. [Concomitant]
     Active Substance: LIDOCAINE
  14. IBUPROFEN. [Concomitant]
     Active Substance: IBUPROFEN
  15. L-GLUTATHIONE [Concomitant]
     Active Substance: GLUTATHIONE
  16. LIPID CONTROL [Concomitant]

REACTIONS (1)
  - Urinary tract infection [Unknown]
